FAERS Safety Report 4383104-1 (Version None)
Quarter: 2004Q2

REPORT INFORMATION
  Report Type: 
  Country: None (occurrence: None)
  Receive Date: 20040618
  Receipt Date: 20040326
  Transmission Date: 20050107
  Serious: Yes (Hospitalization)
  Sender: FDA-Public Use
  Company Number: USA-2004-0015622

PATIENT
  Age: 73 Year
  Sex: Female

DRUGS (2)
  1. MS CONTIN [Suspect]
     Dosage: 20 MG , DAILY, ORAL
     Route: 048
  2. PROCHLORPERAZINE MALEATE (PROCHLORPERAZINE MALEATE) [Suspect]
     Dosage: 5 MG, PRN, ORAL
     Route: 048

REACTIONS (1)
  - INTESTINAL OBSTRUCTION [None]
